FAERS Safety Report 4538885-0 (Version None)
Quarter: 2004Q4

REPORT INFORMATION
  Report Type: 
  Country: None (occurrence: None)
  Receive Date: 20041227
  Receipt Date: 20041207
  Transmission Date: 20050328
  Serious: Yes (Other)
  Sender: FDA-Public Use
  Company Number: US-ABBOTT-04P-163-0282612-00

PATIENT
  Sex: Female
  Weight: 78.088 kg

DRUGS (5)
  1. MERIDIA [Suspect]
     Indication: OBESITY
     Route: 048
     Dates: start: 20040913, end: 20041004
  2. PARACETAMOL [Concomitant]
     Indication: DISCOMFORT
     Route: 048
     Dates: start: 19700101
  3. DIPHENHYDRAMINE HYDROCHLORIDE [Concomitant]
     Indication: HYPERSENSITIVITY
     Route: 048
     Dates: start: 19980101
  4. DIPHENHYDRAMINE HYDROCHLORIDE [Concomitant]
     Indication: INSOMNIA
  5. DOXYCYCLINE [Concomitant]
     Indication: ACNE
     Route: 048
     Dates: start: 20021001

REACTIONS (1)
  - CARDIAC FLUTTER [None]
